FAERS Safety Report 5832056-3 (Version None)
Quarter: 2008Q3

REPORT INFORMATION
  Report Type: 
  Country: None (occurrence: None)
  Receive Date: 20080731
  Receipt Date: 20080731
  Transmission Date: 20090109
  Serious: Yes (Death)
  Sender: FDA-Public Use
  Company Number: None

PATIENT
  Age: 62 Year
  Sex: Male
  Weight: 108.8633 kg

DRUGS (1)
  1. ACTOS [Suspect]
     Indication: DIABETES MELLITUS
     Dosage: 30MG  1X DAY PO
     Route: 048
     Dates: start: 20070307, end: 20080315

REACTIONS (3)
  - DYSPNOEA [None]
  - FLUID RETENTION [None]
  - HYPERHIDROSIS [None]
